FAERS Safety Report 15855327 (Version 7)
Quarter: 2020Q1

REPORT INFORMATION
  Report Type: Spontaneous
  Country: US (occurrence: US)
  Receive Date: 20190122
  Receipt Date: 20200130
  Transmission Date: 20200409
  Serious: Yes (Other)
  Sender: FDA-Public Use
  Company Number: US-BAYER-2019-016066

PATIENT
  Age: 56 Year
  Sex: Male

DRUGS (3)
  1. KOGENATE FS [Suspect]
     Active Substance: ANTIHEMOPHILIC FACTOR, HUMAN RECOMBINANT
     Indication: FACTOR VIII DEFICIENCY
     Dosage: 2111 U, PRN
     Route: 042
     Dates: start: 20181113
  2. KOGENATE FS [Suspect]
     Active Substance: ANTIHEMOPHILIC FACTOR, HUMAN RECOMBINANT
     Indication: HAEMORRHAGE
     Dosage: 2328 U, PRN
     Route: 042
     Dates: start: 20190211
  3. KOGENATE FS [Suspect]
     Active Substance: ANTIHEMOPHILIC FACTOR, HUMAN RECOMBINANT
     Indication: FACTOR VIII DEFICIENCY
     Dosage: 2388 U, PRN
     Route: 042
     Dates: start: 201412

REACTIONS (9)
  - Haemorrhage [Not Recovered/Not Resolved]
  - Renal haemorrhage [Recovered/Resolved]
  - Haemarthrosis [Recovered/Resolved]
  - Muscle haemorrhage [Recovered/Resolved]
  - Skin injury [Not Recovered/Not Resolved]
  - Renal haemorrhage [Recovered/Resolved]
  - Haemorrhage [Recovered/Resolved]
  - Skin haemorrhage [Not Recovered/Not Resolved]
  - Haemarthrosis [Not Recovered/Not Resolved]

NARRATIVE: CASE EVENT DATE: 20190123
